FAERS Safety Report 6394500-5 (Version None)
Quarter: 2009Q4

REPORT INFORMATION
  Report Type: 
  Country: None (occurrence: None)
  Receive Date: 20091009
  Receipt Date: 20090929
  Transmission Date: 20100525
  Serious: Yes (Hospitalization, Other)
  Sender: FDA-Public Use
  Company Number: US-BAYER-200932172NA

PATIENT
  Age: 43 Year
  Sex: Female
  Weight: 104 kg

DRUGS (1)
  1. YAZ [Suspect]
     Indication: MENSTRUAL DISORDER
     Route: 048
     Dates: start: 20080627, end: 20090609

REACTIONS (2)
  - DEEP VEIN THROMBOSIS [None]
  - PULMONARY EMBOLISM [None]
